FAERS Safety Report 9731354 (Version 1)
Quarter: 2013Q4

REPORT INFORMATION
  Report Type: Spontaneous
  Country: US (occurrence: US)
  Receive Date: 20131203
  Receipt Date: 20131203
  Transmission Date: 20140711
  Serious: No
  Sender: FDA-Public Use
  Company Number: US-NOVEN-13US007580

PATIENT
  Age: 40 Year
  Sex: Female

DRUGS (11)
  1. FENTANYL [Suspect]
     Indication: BACK PAIN
     Dosage: 100 UG, QOD
     Route: 062
     Dates: start: 20130817
  2. MOTRIN [Concomitant]
     Dosage: UNK
  3. MORPHINE SULFATE [Concomitant]
     Dosage: UNK
  4. XANAX [Concomitant]
     Dosage: UNK
  5. LAMICTAL [Concomitant]
     Dosage: UNK
  6. GABAPENTIN [Concomitant]
     Dosage: UNK
  7. FLEXERIL                           /00428402/ [Concomitant]
     Dosage: UNK
  8. WELLBUTRIN [Concomitant]
     Dosage: UNK
  9. PAXIL [Concomitant]
     Dosage: UNK
  10. HYDROMORPHONE [Concomitant]
     Dosage: UNK
  11. OTHER MINERAL SUPPLEMENTS [Concomitant]
     Dosage: UNK

REACTIONS (2)
  - Inadequate analgesia [Not Recovered/Not Resolved]
  - Product quality issue [Not Recovered/Not Resolved]
